FAERS Safety Report 5399413-3 (Version None)
Quarter: 2007Q3

REPORT INFORMATION
  Report Type: 
  Country: None (occurrence: None)
  Receive Date: 20070727
  Receipt Date: 20070725
  Transmission Date: 20080115
  Serious: Yes (Other)
  Sender: FDA-Public Use
  Company Number: US-BRISTOL-MYERS SQUIBB COMPANY-12586194

PATIENT
  Sex: Female

DRUGS (5)
  1. ESTRACE [Suspect]
     Indication: MENOPAUSAL SYMPTOMS
  2. ESTRADIOL VALERATE [Suspect]
     Indication: OVARIAN FAILURE POSTOPERATIVE
     Route: 030
  3. PREMARIN [Suspect]
     Indication: MENOPAUSAL SYMPTOMS
  4. PROVERA [Suspect]
     Indication: MENOPAUSAL SYMPTOMS
  5. ESTRATEST H.S. [Suspect]
     Indication: MENOPAUSAL SYMPTOMS

REACTIONS (1)
  - BREAST CANCER [None]
